FAERS Safety Report 15792473 (Version 2)
Quarter: 2019Q1

REPORT INFORMATION
  Report Type: Spontaneous
  Country: CA (occurrence: CA)
  Receive Date: 20190107
  Receipt Date: 20190117
  Transmission Date: 20190417
  Serious: Yes (Other)
  Sender: FDA-Public Use
  Company Number: CA-ORION CORPORATION ORION PHARMA-TREX2019-0015

PATIENT
  Age: 23 Year
  Sex: Female

DRUGS (10)
  1. SOLU-MEDROL [Concomitant]
     Active Substance: METHYLPREDNISOLONE SODIUM SUCCINATE
     Route: 065
     Dates: start: 20181220
  2. JAMP PANTOPRAZOLE [Concomitant]
     Route: 065
  3. ALESSE 28 [Concomitant]
     Active Substance: ETHINYL ESTRADIOL\LEVONORGESTREL
     Dosage: 0.02-0.1MG
     Route: 065
     Dates: start: 20181114, end: 20181219
  4. APO-PREDNISONE [Concomitant]
     Active Substance: PREDNISONE
     Route: 065
  5. METHOTREXATE (TRADE NAME UNKNOWN) [Suspect]
     Active Substance: METHOTREXATE
     Route: 065
  6. JAMP VITAMIN D [Concomitant]
     Route: 065
  7. METHOTREXATE (TRADE NAME UNKNOWN) [Suspect]
     Active Substance: METHOTREXATE
     Indication: PRODUCT USED FOR UNKNOWN INDICATION
     Route: 065
     Dates: start: 201402
  8. CITALOPRAM [Concomitant]
     Active Substance: CITALOPRAM HYDROBROMIDE
     Route: 065
  9. JAMP FOLIC ACID [Concomitant]
     Route: 065
  10. ENTOCORT [Concomitant]
     Active Substance: BUDESONIDE
     Route: 065
     Dates: start: 20181114

REACTIONS (3)
  - Abdominal pain [Unknown]
  - Drug ineffective [Unknown]
  - Colitis [Unknown]
